FAERS Safety Report 9414542 (Version 5)
Quarter: 2013Q3

REPORT INFORMATION
  Report Type: Spontaneous
  Country: US (occurrence: US)
  Receive Date: 20130723
  Receipt Date: 20130925
  Transmission Date: 20140515
  Serious: Yes (Hospitalization)
  Sender: FDA-Public Use
  Company Number: US-JNJFOC-20130604369

PATIENT
  Age: 23 Year
  Sex: Male
  Weight: 63.51 kg

DRUGS (20)
  1. REMICADE [Suspect]
     Indication: CROHN^S DISEASE
     Route: 042
     Dates: start: 20130816
  2. REMICADE [Suspect]
     Indication: CROHN^S DISEASE
     Route: 042
     Dates: start: 20130628
  3. REMICADE [Suspect]
     Indication: CROHN^S DISEASE
     Dosage: INDUCTION DOSES AT 0, 2, 6 WEEKS AND THEN 8 WEEKS
     Route: 042
     Dates: start: 20130523
  4. REMICADE [Suspect]
     Indication: CROHN^S DISEASE
     Dosage: SECOND INFUSION AFTER RESTART
     Route: 042
     Dates: start: 20130606, end: 20130606
  5. TYLENOL [Concomitant]
     Indication: PREMEDICATION
     Route: 048
     Dates: start: 20130523
  6. TYLENOL [Concomitant]
     Indication: PREMEDICATION
     Route: 048
     Dates: start: 20130606
  7. TYLENOL [Concomitant]
     Indication: PREMEDICATION
     Route: 048
     Dates: start: 20130816
  8. TYLENOL [Concomitant]
     Indication: PREMEDICATION
     Route: 048
     Dates: start: 20130628
  9. BENADRYL [Concomitant]
     Indication: PREMEDICATION
     Route: 048
     Dates: start: 20130816
  10. BENADRYL [Concomitant]
     Indication: PREMEDICATION
     Route: 048
     Dates: start: 20130523
  11. BENADRYL [Concomitant]
     Indication: PREMEDICATION
     Route: 048
     Dates: start: 20130628
  12. BENADRYL [Concomitant]
     Indication: PREMEDICATION
     Route: 048
     Dates: start: 20130606
  13. PREDNISONE [Concomitant]
     Indication: PREMEDICATION
     Route: 048
     Dates: start: 20130628
  14. PREDNISONE [Concomitant]
     Indication: PREMEDICATION
     Route: 048
     Dates: start: 20130523
  15. PREDNISONE [Concomitant]
     Indication: PREMEDICATION
     Route: 048
     Dates: start: 20130606
  16. PREDNISONE [Concomitant]
     Indication: PREMEDICATION
     Dosage: AS DIRECTED
     Route: 048
     Dates: start: 20130627
  17. PREDNISONE [Concomitant]
     Indication: PREMEDICATION
     Route: 048
     Dates: start: 20130815
  18. SOLU MEDROL [Concomitant]
     Indication: PREMEDICATION
     Route: 041
     Dates: start: 20130606
  19. SOLU MEDROL [Concomitant]
     Indication: PREMEDICATION
     Route: 041
     Dates: start: 20130628
  20. SOLU MEDROL [Concomitant]
     Indication: PREMEDICATION
     Route: 041
     Dates: start: 20130816

REACTIONS (10)
  - Rhabdomyolysis [Recovered/Resolved]
  - Anaemia [Recovered/Resolved]
  - Infusion related reaction [Not Recovered/Not Resolved]
  - Dyspnoea [Not Recovered/Not Resolved]
  - Chest pain [Not Recovered/Not Resolved]
  - Hypertension [Not Recovered/Not Resolved]
  - Tachycardia [Not Recovered/Not Resolved]
  - Abdominal pain [Not Recovered/Not Resolved]
  - Chills [Not Recovered/Not Resolved]
  - Back pain [Not Recovered/Not Resolved]
